FAERS Safety Report 11984205 (Version 9)
Quarter: 2019Q2

REPORT INFORMATION
  Report Type: Spontaneous
  Country: US (occurrence: US)
  Receive Date: 20160201
  Receipt Date: 20190402
  Transmission Date: 20190711
  Serious: Yes (Hospitalization, Other)
  Sender: FDA-Public Use
  Company Number: US-DSJP-DSU-2015-134268

PATIENT

DRUGS (4)
  1. BENICAR [Suspect]
     Active Substance: OLMESARTAN MEDOXOMIL
     Indication: HYPERTENSION
     Dosage: 40 MG, QD
     Route: 048
     Dates: end: 20130228
  2. TYLENOL [Concomitant]
     Active Substance: ACETAMINOPHEN
     Indication: PRODUCT USED FOR UNKNOWN INDICATION
     Dosage: UNK
  3. SYNTHROID [Concomitant]
     Active Substance: LEVOTHYROXINE SODIUM
     Indication: THYROID DISORDER
     Dosage: UNK
  4. ADVIL (MEFENAMIC ACID) [Concomitant]
     Active Substance: MEFENAMIC ACID
     Indication: PRODUCT USED FOR UNKNOWN INDICATION
     Dosage: UNK

REACTIONS (18)
  - Hyposmia [Recovered/Resolved]
  - Coeliac disease [Unknown]
  - Acute kidney injury [Not Recovered/Not Resolved]
  - Hepatic steatosis [Not Recovered/Not Resolved]
  - Gastroenteritis viral [Unknown]
  - Polyp [Unknown]
  - Oesophagitis ulcerative [Unknown]
  - Ileus [Unknown]
  - Sprue-like enteropathy [Recovered/Resolved]
  - Anosmia [Unknown]
  - Sepsis [Unknown]
  - Hiatus hernia [Not Recovered/Not Resolved]
  - Appendicitis [Recovered/Resolved]
  - Ageusia [Unknown]
  - Dizziness [Unknown]
  - Gastrooesophageal reflux disease [Unknown]
  - Diverticulum intestinal [Not Recovered/Not Resolved]
  - Abdominal hernia [Unknown]

NARRATIVE: CASE EVENT DATE: 20110615
